FAERS Safety Report 4907360-3 (Version None)
Quarter: 2006Q1

REPORT INFORMATION
  Report Type: 
  Country: None (occurrence: None)
  Receive Date: 20060208
  Receipt Date: 20060208
  Transmission Date: 20060701
  Serious: Yes (Hospitalization)
  Sender: FDA-Public Use
  Company Number: None

PATIENT
  Age: 43 Year
  Sex: Female

DRUGS (3)
  1. DEPAKOTE ER 500MG TABS - ABBOTT [Suspect]
     Indication: MIGRAINE
     Dosage: 1000MG Q DAY
     Dates: start: 20051218, end: 20060201
  2. PHENERGAN [Concomitant]
  3. TOPAMAX [Concomitant]

REACTIONS (5)
  - ANXIETY [None]
  - DYSPNOEA [None]
  - HAEMORRHAGE [None]
  - INCORRECT DOSE ADMINISTERED [None]
  - PALPITATIONS [None]
